FAERS Safety Report 18628814 (Version 7)
Quarter: 2023Q1

REPORT INFORMATION
  Report Type: Spontaneous
  Country: US (occurrence: US)
  Receive Date: 20201217
  Receipt Date: 20230202
  Transmission Date: 20230418
  Serious: Yes (Other)
  Sender: FDA-Public Use
  Company Number: NVSC2020US333460

PATIENT
  Age: 7 Year
  Sex: Female

DRUGS (1)
  1. KYMRIAH [Suspect]
     Active Substance: TISAGENLECLEUCEL
     Indication: Acute lymphocytic leukaemia recurrent
     Dosage: UNK UNK, ONCE/SINGLE
     Route: 042
     Dates: start: 20200401, end: 20200422

REACTIONS (6)
  - Metastases to bone [Unknown]
  - Metastases to kidney [Unknown]
  - Metastases to pleura [Unknown]
  - Platelet count decreased [Unknown]
  - Paraesthesia [Unknown]
  - Therapy non-responder [Not Recovered/Not Resolved]

NARRATIVE: CASE EVENT DATE: 20200401
